FAERS Safety Report 17408142 (Version 2)
Quarter: 2020Q1

REPORT INFORMATION
  Report Type: Spontaneous
  Country: US (occurrence: US)
  Receive Date: 20200212
  Receipt Date: 20200213
  Transmission Date: 20200409
  Serious: Yes (Other)
  Sender: FDA-Public Use
  Company Number: US-PFIZER INC-2020061426

PATIENT
  Age: 76 Year
  Sex: Female
  Weight: 61.22 kg

DRUGS (2)
  1. PREMARIN [Suspect]
     Active Substance: ESTROGENS, CONJUGATED
     Indication: ATROPHIC VULVOVAGINITIS
  2. PREMARIN [Suspect]
     Active Substance: ESTROGENS, CONJUGATED
     Indication: URETHRAL CARBUNCLE
     Dosage: 1 G, 2X/WEEK
     Route: 067

REACTIONS (7)
  - Vulvovaginal pain [Unknown]
  - Bacterial infection [Recovered/Resolved]
  - Bacterial vaginosis [Recovered/Resolved]
  - Discomfort [Unknown]
  - Drug ineffective [Unknown]
  - Vaginal discharge [Unknown]
  - Vulvovaginal burning sensation [Unknown]

NARRATIVE: CASE EVENT DATE: 201912
